FAERS Safety Report 8674261 (Version 2)
Quarter: 2012Q4

REPORT INFORMATION
  Report Type: 
  Country: US (occurrence: US)
  Receive Date: 20120830
  Receipt Date: 20121228
  Transmission Date: 20130627
  Serious: No
  Sender: FDA-Public Use
  Company Number: US-009507513-1207USA005648

PATIENT
  Age: 65 None
  Sex: Male

DRUGS (1)
  1. TIMOPTIC XE [Suspect]
     Indication: INTRAOCULAR PRESSURE TEST
     Dosage: 1 Gtt, hs
     Route: 047
     Dates: start: 201203

REACTIONS (5)
  - Intraocular pressure increased [Unknown]
  - Foreign body sensation in eyes [Unknown]
  - Eyelid margin crusting [Unknown]
  - Product quality issue [Unknown]
  - Drug ineffective [Unknown]
